FAERS Safety Report 11995090 (Version 1)
Quarter: 2016Q1

REPORT INFORMATION
  Report Type: Spontaneous
  Country: US (occurrence: US)
  Receive Date: 20160203
  Receipt Date: 20160203
  Transmission Date: 20160526
  Serious: Yes (Hospitalization)
  Sender: FDA-Public Use
  Company Number: US-UCBSA-2015006194

PATIENT
  Age: 65 Year
  Sex: Female
  Weight: 65 kg

DRUGS (1)
  1. KEPPRA XR [Suspect]
     Active Substance: LEVETIRACETAM
     Indication: SEIZURE
     Dosage: 2000 MG, ONCE DAILY (QD)
     Dates: end: 201501

REACTIONS (1)
  - Seizure [Recovering/Resolving]

NARRATIVE: CASE EVENT DATE: 20150129
